FAERS Safety Report 6748136-4 (Version None)
Quarter: 2010Q2

REPORT INFORMATION
  Report Type: 
  Country: None (occurrence: None)
  Receive Date: 20100531
  Receipt Date: 20100521
  Transmission Date: 20101027
  Serious: Yes (Other)
  Sender: FDA-Public Use
  Company Number: TR-JNJFOC-20100509844

PATIENT
  Age: 22 Year
  Sex: Female

DRUGS (2)
  1. TOPAMAX [Suspect]
     Indication: EPILEPSY
     Route: 048
  2. TEGRETOL [Concomitant]
     Indication: DRUG USE FOR UNKNOWN INDICATION
     Route: 065

REACTIONS (2)
  - DEPRESSION [None]
  - MEMORY IMPAIRMENT [None]
